FAERS Safety Report 19011952 (Version 1)
Quarter: 2021Q1

REPORT INFORMATION
  Report Type: Spontaneous
  Country: US (occurrence: US)
  Receive Date: 20210315
  Receipt Date: 20210315
  Transmission Date: 20210420
  Serious: No
  Sender: FDA-Public Use
  Company Number: None

PATIENT
  Age: 59 Year
  Sex: Male

DRUGS (2)
  1. FLOMAX [Suspect]
     Active Substance: TAMSULOSIN HYDROCHLORIDE
  2. ABIRATERONE TAB [Suspect]
     Active Substance: ABIRATERONE
     Route: 048
     Dates: start: 20210114

REACTIONS (2)
  - Unevaluable event [None]
  - Pain [None]

NARRATIVE: CASE EVENT DATE: 20210308
